FAERS Safety Report 19036958 (Version 1)
Quarter: 2021Q1

REPORT INFORMATION
  Report Type: Spontaneous
  Country: US (occurrence: US)
  Receive Date: 20210322
  Receipt Date: 20210322
  Transmission Date: 20210420
  Serious: Yes (Other)
  Sender: FDA-Public Use
  Company Number: US-ABBVIE-21K-163-3818247-00

PATIENT
  Age: 74 Year
  Sex: Female

DRUGS (1)
  1. HUMIRA [Suspect]
     Active Substance: ADALIMUMAB
     Indication: COLITIS ULCERATIVE
     Route: 058
     Dates: start: 2018

REACTIONS (7)
  - Diverticulitis [Unknown]
  - Injection site pain [Unknown]
  - Device issue [Recovered/Resolved]
  - Diarrhoea [Unknown]
  - Gastritis [Recovered/Resolved]
  - Abdominal pain [Unknown]
  - Furuncle [Unknown]

NARRATIVE: CASE EVENT DATE: 20210315
